FAERS Safety Report 9458871 (Version 1)
Quarter: 2013Q3

REPORT INFORMATION
  Report Type: Spontaneous
  Country: US (occurrence: US)
  Receive Date: 20130814
  Receipt Date: 20130814
  Transmission Date: 20140515
  Serious: Yes (Other)
  Sender: FDA-Public Use
  Company Number: US-GLAXOSMITHKLINE-A1037181A

PATIENT
  Age: 59 Year
  Sex: Female

DRUGS (2)
  1. ADVAIR [Suspect]
     Indication: ASTHMA
     Dosage: 1PUFF TWICE PER DAY
     Route: 055
     Dates: start: 2003
  2. ANTIFUNGAL AGENT (UNSPECIFIED) [Concomitant]

REACTIONS (5)
  - Bronchopulmonary aspergillosis [Recovering/Resolving]
  - Dysphonia [Recovering/Resolving]
  - Oropharyngeal pain [Recovering/Resolving]
  - White blood cell count increased [Recovering/Resolving]
  - Eosinophil count increased [Recovering/Resolving]
